FAERS Safety Report 6178964-8 (Version None)
Quarter: 2009Q2

REPORT INFORMATION
  Report Type: 
  Country: None (occurrence: None)
  Receive Date: 20090505
  Receipt Date: 20090501
  Transmission Date: 20091009
  Serious: Yes (Death)
  Sender: FDA-Public Use
  Company Number: JP-JNJFOC-20090206572

PATIENT
  Sex: Male
  Weight: 46 kg

DRUGS (8)
  1. ITRIZOLE [Suspect]
     Indication: OESOPHAGEAL CANDIDIASIS
     Route: 048
  2. ITRIZOLE [Suspect]
     Indication: PYREXIA
     Route: 048
  3. ITRIZOLE [Suspect]
     Indication: SYSTEMIC MYCOSIS
     Route: 048
  4. ITRIZOLE [Suspect]
     Indication: ORAL CANDIDIASIS
     Route: 048
  5. EPERISONE HYDROCHLORIDE [Concomitant]
     Indication: CEREBRAL HAEMORRHAGE
     Route: 048
  6. RIVOTRIL [Concomitant]
     Indication: CEREBRAL HAEMORRHAGE
     Route: 048
  7. FAMOTIDINE [Concomitant]
     Indication: GASTRIC ULCER
     Route: 048
  8. PHENYTOIN [Concomitant]
     Indication: CONVULSION
     Route: 048

REACTIONS (7)
  - EOSINOPHILIA [None]
  - GASTROINTESTINAL HAEMORRHAGE [None]
  - PYREXIA [None]
  - RASH [None]
  - RASH GENERALISED [None]
  - SEPTIC SHOCK [None]
  - WHITE BLOOD CELL COUNT INCREASED [None]
